FAERS Safety Report 17483335 (Version 1)
Quarter: 2020Q1

REPORT INFORMATION
  Report Type: Spontaneous
  Country: US (occurrence: US)
  Receive Date: 20200302
  Receipt Date: 20200302
  Transmission Date: 20200409
  Serious: Yes (Death, Hospitalization)
  Sender: FDA-Public Use
  Company Number: US-MYLANLABS-2020M1020989

PATIENT
  Age: 41 Year
  Sex: Female

DRUGS (4)
  1. MIRTAZAPINE. [Concomitant]
     Active Substance: MIRTAZAPINE
     Indication: PRODUCT USED FOR UNKNOWN INDICATION
     Route: 065
  2. BUSPIRONE [Concomitant]
     Active Substance: BUSPIRONE HYDROCHLORIDE
     Indication: PRODUCT USED FOR UNKNOWN INDICATION
     Route: 065
  3. GABAPENTIN. [Concomitant]
     Active Substance: GABAPENTIN
     Indication: PRODUCT USED FOR UNKNOWN INDICATION
     Route: 065
  4. LOPERAMIDE [Suspect]
     Active Substance: LOPERAMIDE
     Indication: PRODUCT USED FOR UNKNOWN INDICATION
     Route: 048

REACTIONS (14)
  - Hypoxic-ischaemic encephalopathy [Fatal]
  - Unresponsive to stimuli [Not Recovered/Not Resolved]
  - Cardiac arrest [Recovered/Resolved]
  - Toxicity to various agents [Fatal]
  - Myoclonus [Fatal]
  - Electrocardiogram QT prolonged [Fatal]
  - Dizziness [Not Recovered/Not Resolved]
  - Drug abuse [Fatal]
  - Asthenia [Not Recovered/Not Resolved]
  - Pulse absent [Fatal]
  - Dyspnoea [Not Recovered/Not Resolved]
  - Electrocardiogram QRS complex prolonged [Recovering/Resolving]
  - Pulmonary embolism [Fatal]
  - Brain oedema [Fatal]
